FAERS Safety Report 20896527 (Version 20)
Quarter: 2024Q2

REPORT INFORMATION
  Report Type: Other
  Country: CA (occurrence: None)
  Receive Date: 20220531
  Receipt Date: 20240604
  Transmission Date: 20240716
  Serious: Yes (Other)
  Sender: FDA-Public Use
  Company Number: CA-ROCHE-3024357

PATIENT
  Age: 77 Year
  Sex: Female
  Weight: 55 kg

DRUGS (7)
  1. ACTEMRA [Suspect]
     Active Substance: TOCILIZUMAB
     Indication: Rheumatoid arthritis
     Route: 058
     Dates: start: 20210424, end: 20220712
  2. ACTEMRA [Suspect]
     Active Substance: TOCILIZUMAB
     Indication: Rheumatoid arthritis
     Route: 042
     Dates: start: 20220812
  3. ACETAMINOPHEN [Concomitant]
     Active Substance: ACETAMINOPHEN
  4. ATIVAN [Concomitant]
     Active Substance: LORAZEPAM
     Indication: Sleep disorder
     Route: 060
  5. CRESTOR [Concomitant]
     Active Substance: ROSUVASTATIN CALCIUM
     Indication: Arteriosclerosis
  6. VOLTAREN [Concomitant]
     Active Substance: DICLOFENAC SODIUM
  7. CORTISONE [Concomitant]
     Active Substance: CORTISONE

REACTIONS (14)
  - Rheumatoid arthritis [Unknown]
  - Weight decreased [Not Recovered/Not Resolved]
  - Blood pressure systolic increased [Unknown]
  - Therapeutic product effect decreased [Unknown]
  - Osteoarthritis [Unknown]
  - Hypertension [Recovering/Resolving]
  - Stress [Unknown]
  - Lip swelling [Unknown]
  - Blood pressure increased [Unknown]
  - Weight increased [Unknown]
  - Anxiety [Unknown]
  - Oxygen saturation decreased [Unknown]
  - White coat hypertension [Unknown]
  - Blood pressure systolic abnormal [Unknown]

NARRATIVE: CASE EVENT DATE: 20220810
